FAERS Safety Report 4354558-1 (Version None)
Quarter: 2004Q2

REPORT INFORMATION
  Report Type: 
  Country: None (occurrence: None)
  Receive Date: 20040503
  Receipt Date: 20040421
  Transmission Date: 20050107
  Serious: Yes (Hospitalization)
  Sender: FDA-Public Use
  Company Number: 2004UW08111

PATIENT

DRUGS (1)
  1. CRESTOR [Suspect]
     Dosage: NI
     Route: 065

REACTIONS (1)
  - DEEP VEIN THROMBOSIS [None]
